FAERS Safety Report 26091372 (Version 1)
Quarter: 2025Q4

REPORT INFORMATION
  Report Type: Spontaneous
  Country: TW (occurrence: TW)
  Receive Date: 20251126
  Receipt Date: 20251126
  Transmission Date: 20260118
  Serious: Yes (Hospitalization)
  Sender: ROCHE
  Company Number: TW-CHUGAI-2025038139

PATIENT
  Sex: Female

DRUGS (1)
  1. PIASKY [Suspect]
     Active Substance: CROVALIMAB-AKKZ
     Indication: Paroxysmal nocturnal haemoglobinuria
     Dosage: 340 MILLIGRAM, ONCE/WEEK
     Route: 050
     Dates: start: 20251023

REACTIONS (2)
  - Anaemia [Unknown]
  - Furuncle [Unknown]
